FAERS Safety Report 4316927-5 (Version None)
Quarter: 2004Q1

REPORT INFORMATION
  Report Type: 
  Country: None (occurrence: None)
  Receive Date: 20040308
  Receipt Date: 20040227
  Transmission Date: 20041129
  Serious: Yes (Other)
  Sender: FDA-Public Use
  Company Number: 200310701BCA

PATIENT
  Age: 25 Year
  Sex: Female

DRUGS (11)
  1. GAMIMUNE N 10% [Suspect]
     Indication: AUTOIMMUNE DISORDER
     Dosage: 80 G, TOTAL DAILY, INTRAVENOUS
     Route: 042
     Dates: start: 20030929
  2. GAMIMUNE N 10% [Suspect]
     Indication: THROMBOCYTOPENIA NEONATAL
     Dosage: 80 G, TOTAL DAILY, INTRAVENOUS
     Route: 042
     Dates: start: 20030929
  3. GAMIMUNE N 10% [Suspect]
     Dosage: 80 G, TOTAL DAILY, INTRAVENOUS
     Route: 042
     Dates: start: 20030915
  4. GAMIMUNE N 10% [Suspect]
     Dosage: 80 G, TOTAL DAILY, INTRAVENOUS
     Route: 042
     Dates: start: 20030922
  5. GAMIMUNE N 10% [Suspect]
     Dosage: 80 G, TOTAL DAILY, INTRAVENOUS
     Route: 042
     Dates: start: 20030905
  6. GAMIMUNE N 10% [Suspect]
     Dosage: 80 G, TOTAL DAILY, INTRAVENOUS
     Route: 042
     Dates: start: 20030905
  7. GAMIMUNE N 10% [Suspect]
     Dosage: 80 G, TOTAL DAILY, INTRAVENOUS
     Route: 042
     Dates: start: 20030818
  8. GAMIMUNE N 10% [Suspect]
     Dosage: 80 G, TOTAL DAILY, INTRAVENOUS
     Route: 042
     Dates: start: 20030805
  9. GAMIMUNE N 10% [Suspect]
     Dosage: 80 G, TOTAL DAILY, INTRAVENOUS
     Route: 042
     Dates: start: 20030721
  10. GAMIMUNE N 10% [Suspect]
     Dosage: 80 G, TOTAL DAILY, INTRAVENOUS
     Route: 042
     Dates: start: 20030707
  11. GAMIMUNE N 10% [Suspect]
     Dosage: 80 G, TOTAL DAILY, INTRAVENOUS
     Route: 042
     Dates: start: 20030625

REACTIONS (7)
  - CAESAREAN SECTION [None]
  - COMPLICATIONS OF MATERNAL EXPOSURE TO THERAPEUTIC DRUGS [None]
  - FALSE POSITIVE LABORATORY RESULT [None]
  - HTLV-1 ANTIBODY POSITIVE [None]
  - HTLV-2 ANTIBODY POSITIVE [None]
  - INDIRECT INFECTION TRANSMISSION [None]
  - PHARMACEUTICAL PRODUCT COMPLAINT [None]
